FAERS Safety Report 8454911-0 (Version None)
Quarter: 2012Q2

REPORT INFORMATION
  Report Type: 
  Country: None (occurrence: None)
  Receive Date: 20120615
  Receipt Date: 20120615
  Transmission Date: 20120825
  Serious: Yes (Life-Threatening, Other)
  Sender: FDA-Public Use
  Company Number: None

PATIENT
  Age: 56 Year
  Sex: Female
  Weight: 150 kg

DRUGS (2)
  1. TAMOXIFEN CITRATE [Suspect]
     Indication: PROPHYLAXIS
     Dosage: 20 MG ONE DAILY RX 200005548
     Dates: start: 20120302
  2. TAMOXIFEN CITRATE [Suspect]
     Indication: BREAST CANCER RECURRENT
     Dosage: 20 MG ONE DAILY RX 200005548
     Dates: start: 20120302

REACTIONS (1)
  - METRORRHAGIA [None]
